FAERS Safety Report 7064284-6 (Version None)
Quarter: 2010Q4

REPORT INFORMATION
  Report Type: 
  Country: None (occurrence: None)
  Receive Date: 20101027
  Receipt Date: 20101018
  Transmission Date: 20110411
  Serious: Yes (Other)
  Sender: FDA-Public Use
  Company Number: ES-ASTRAZENECA-2010SE49572

PATIENT
  Age: 58 Year
  Sex: Male

DRUGS (2)
  1. CRESTOR [Suspect]
     Indication: INTERMITTENT CLAUDICATION
     Route: 048
     Dates: start: 20091015, end: 20100916
  2. EFFICIB [Suspect]
     Indication: DIABETES MELLITUS
     Dosage: 50 MG/1000 MG TWICE PER DAY
     Route: 048
     Dates: start: 20090515

REACTIONS (1)
  - ALOPECIA AREATA [None]
